FAERS Safety Report 15159120 (Version 2)
Quarter: 2018Q3

REPORT INFORMATION
  Report Type: Spontaneous
  Country: FR (occurrence: FR)
  Receive Date: 20180718
  Receipt Date: 20180730
  Transmission Date: 20181010
  Serious: Yes (Hospitalization)
  Sender: FDA-Public Use
  Company Number: FR-PFIZER INC-2018282870

PATIENT
  Age: 65 Year
  Sex: Male
  Weight: 96 kg

DRUGS (9)
  1. FLUDARABINE [Concomitant]
     Active Substance: FLUDARABINE PHOSPHATE
     Indication: CHRONIC LYMPHOCYTIC LEUKAEMIA
     Dosage: 40 MG/M2, CYCLIC
     Route: 048
     Dates: start: 20180504, end: 20180506
  2. ENDOXAN /00021102/ [Concomitant]
     Active Substance: CYCLOPHOSPHAMIDE
     Indication: CHRONIC LYMPHOCYTIC LEUKAEMIA
     Dosage: 250 MG/M2, CYCLIC
     Route: 048
     Dates: start: 20180504, end: 20180506
  3. ENDOXAN /00021101/ [Concomitant]
     Active Substance: CYCLOPHOSPHAMIDE
     Indication: CHRONIC LYMPHOCYTIC LEUKAEMIA
     Dosage: 250 MG/M2, CYCLIC
     Route: 048
     Dates: start: 20180504, end: 20180506
  4. RITUXIMAB. [Suspect]
     Active Substance: RITUXIMAB
     Dosage: 325 MG/M2, CYCLIC
     Route: 042
     Dates: start: 20180504, end: 20180504
  5. ZELITREX [Suspect]
     Active Substance: VALACYCLOVIR HYDROCHLORIDE
     Indication: PROPHYLAXIS
     Dosage: 1000 MG, 1X/DAY
     Route: 048
     Dates: start: 20180504, end: 20180515
  6. BACTRIM [Suspect]
     Active Substance: SULFAMETHOXAZOLE\TRIMETHOPRIM
     Indication: PROPHYLAXIS
     Dosage: 9 DF, WEEKLY
     Route: 048
     Dates: start: 20180504, end: 20180515
  7. GRANOCYTE [Suspect]
     Active Substance: LENOGRASTIM
     Indication: NEUTROPENIA
     Dosage: 0.26 MG, 1X/DAY
     Route: 058
     Dates: start: 20180512
  8. ATORVASTATIN CALCIUM. [Suspect]
     Active Substance: ATORVASTATIN CALCIUM
     Indication: DYSLIPIDAEMIA
     Dosage: 40 MG, 1X/DAY
     Route: 048
     Dates: end: 20180517
  9. RITUXIMAB. [Suspect]
     Active Substance: RITUXIMAB
     Indication: CHRONIC LYMPHOCYTIC LEUKAEMIA
     Dosage: 500 MG/M2, CYCLIC
     Route: 042
     Dates: start: 20180503, end: 20180503

REACTIONS (3)
  - Hepatocellular injury [Not Recovered/Not Resolved]
  - Cholestasis [Not Recovered/Not Resolved]
  - Generalised erythema [Recovering/Resolving]

NARRATIVE: CASE EVENT DATE: 20180514
